FAERS Safety Report 5732103-3 (Version None)
Quarter: 2008Q2

REPORT INFORMATION
  Report Type: 
  Country: None (occurrence: None)
  Receive Date: 20080506
  Receipt Date: 20080421
  Transmission Date: 20081010
  Serious: Yes (Life-Threatening)
  Sender: FDA-Public Use
  Company Number: 310006M08FRA

PATIENT
  Age: 29 Year
  Sex: Female

DRUGS (6)
  1. GONAL-F [Suspect]
     Indication: HORMONE THERAPY
     Dates: start: 20041201, end: 20050101
  2. CLOMID [Suspect]
     Indication: HORMONE THERAPY
     Dates: start: 20010101
  3. CLOMID [Suspect]
     Indication: HORMONE THERAPY
     Dates: start: 20040101
  4. PUREGON (FOLLITROPIN BETA) (FOLLITROPIN BETA) [Suspect]
     Indication: HORMONE THERAPY
     Dates: start: 20010601, end: 20041201
  5. ESOMEPRAZOLE [Concomitant]
  6. LEVOTHYROXNE [Concomitant]

REACTIONS (1)
  - BREAST CANCER FEMALE [None]
